FAERS Safety Report 8293804-9 (Version None)
Quarter: 2012Q2

REPORT INFORMATION
  Report Type: 
  Country: None (occurrence: None)
  Receive Date: 20120413
  Receipt Date: 20120329
  Transmission Date: 20120825
  Serious: Yes (Death)
  Sender: FDA-Public Use
  Company Number: 2012-149

PATIENT
  Age: 55 Year
  Sex: Male

DRUGS (6)
  1. FLOMAX [Concomitant]
  2. FAZACLO ODT [Suspect]
     Dosage: 600 MG, QD, ORAL
     Route: 048
     Dates: start: 20110629, end: 20120324
  3. RISPERDAL [Concomitant]
  4. PREDNISOLONE [Concomitant]
  5. SPIRIVA [Concomitant]
  6. ZANTAC [Concomitant]

REACTIONS (1)
  - PULMONARY FIBROSIS [None]
